FAERS Safety Report 19372827 (Version 1)
Quarter: 2021Q2

REPORT INFORMATION
  Report Type: Spontaneous
  Country: US (occurrence: US)
  Receive Date: 20210603
  Receipt Date: 20210603
  Transmission Date: 20210717
  Serious: Yes (Life-Threatening, Other)
  Sender: FDA-Public Use
  Company Number: None

PATIENT
  Age: 50 Year
  Sex: Female
  Weight: 67.5 kg

DRUGS (7)
  1. VIT B [Concomitant]
     Active Substance: VITAMIN B
  2. ANASTROZOLE. [Concomitant]
     Active Substance: ANASTROZOLE
  3. BONIVA [Suspect]
     Active Substance: IBANDRONATE SODIUM
     Indication: OSTEOPOROSIS
  4. PRAVASTATIN. [Concomitant]
     Active Substance: PRAVASTATIN
  5. VITAMIN C [Concomitant]
     Active Substance: ASCORBIC ACID
  6. MAGNESIUM [Concomitant]
     Active Substance: MAGNESIUM
  7. VIT D [Concomitant]
     Active Substance: VITAMIN D NOS

REACTIONS (5)
  - Dizziness [None]
  - Influenza like illness [None]
  - Chest pain [None]
  - Fibrin D dimer increased [None]
  - Bone pain [None]

NARRATIVE: CASE EVENT DATE: 20210601
